FAERS Safety Report 6061181-X (Version None)
Quarter: 2009Q1

REPORT INFORMATION
  Report Type: 
  Country: None (occurrence: None)
  Receive Date: 20090202
  Receipt Date: 20090122
  Transmission Date: 20090719
  Serious: Yes (Other)
  Sender: FDA-Public Use
  Company Number: US-PFIZER INC-2009159172

PATIENT
  Sex: Female
  Weight: 270 kg

DRUGS (3)
  1. SUTENT [Suspect]
     Indication: RENAL CANCER
     Dosage: 50 MG, 1X/DAY
     Dates: start: 20080801
  2. SUTENT [Suspect]
     Indication: LYMPHATIC SYSTEM NEOPLASM
  3. ALL OTHER THERAPEUTIC PRODUCTS [Concomitant]
     Indication: BLOOD PRESSURE

REACTIONS (1)
  - BRADYCARDIA [None]
